FAERS Safety Report 6577119-2 (Version None)
Quarter: 2010Q1

REPORT INFORMATION
  Report Type: 
  Country: None (occurrence: None)
  Receive Date: 20100210
  Receipt Date: 20100201
  Transmission Date: 20100710
  Serious: Yes (Other)
  Sender: FDA-Public Use
  Company Number: DE-ELI_LILLY_AND_COMPANY-DE201002000780

PATIENT
  Sex: Female
  Weight: 79 kg

DRUGS (3)
  1. BYETTA [Suspect]
     Indication: DIABETES MELLITUS
     Dosage: 5 UG, 2/D
     Route: 058
     Dates: start: 20091211
  2. ATACAND [Concomitant]
     Indication: HYPERTENSION
     Dosage: 16 MG, UNKNOWN
     Route: 065
     Dates: start: 20070101
  3. UDC [Concomitant]
     Indication: LIVER FUNCTION TEST ABNORMAL
     Dosage: 400 MG, UNKNOWN
     Route: 065
     Dates: start: 20070101

REACTIONS (2)
  - ARTHRALGIA [None]
  - MYALGIA [None]
